FAERS Safety Report 11004287 (Version 1)
Quarter: 2015Q1

REPORT INFORMATION
  Report Type: Spontaneous
  Country: US (occurrence: None)
  Receive Date: 20150227
  Receipt Date: 20150227
  Transmission Date: 20150721
  Serious: Yes (Life-Threatening)
  Sender: FDA-Public Use
  Company Number: LMI-2013-00523

PATIENT
  Age: 59 Year
  Sex: Male
  Weight: 92.53 kg

DRUGS (1)
  1. DEFINITY [Suspect]
     Active Substance: PERFLUTREN
     Indication: STRESS ECHOCARDIOGRAM
     Dosage: DILUTION UNKNOWN (2 ML),INTRAVENOUS (NOT OTHERWISE SPECIFIED)
     Route: 042
     Dates: start: 20131211, end: 20131211

REACTIONS (11)
  - Back pain [None]
  - Dyspnoea [None]
  - Feeling hot [None]
  - Hypersensitivity [None]
  - Syncope [None]
  - Pruritus [None]
  - Flushing [None]
  - Blood pressure systolic decreased [None]
  - Dizziness [None]
  - Rash [None]
  - Headache [None]

NARRATIVE: CASE EVENT DATE: 20131211
